FAERS Safety Report 24942226 (Version 3)
Quarter: 2025Q1

REPORT INFORMATION
  Report Type: Spontaneous
  Country: US (occurrence: US)
  Receive Date: 20250207
  Receipt Date: 20250313
  Transmission Date: 20250409
  Serious: No
  Sender: PFIZER
  Company Number: US-PFIZER INC-202500022538

PATIENT
  Age: 68 Year
  Sex: Male

DRUGS (2)
  1. SOMAVERT [Suspect]
     Active Substance: PEGVISOMANT
     Indication: Acromegaly
     Route: 058
     Dates: start: 20250114
  2. SOMAVERT [Suspect]
     Active Substance: PEGVISOMANT
     Indication: Pituitary tumour benign
     Dosage: INJECT 10 MG SUBCUTANEOUSLY DAILY. START DAY AFTER LOADING DOSE OF 40 MG.
     Route: 058

REACTIONS (3)
  - Device defective [Unknown]
  - Device use error [Unknown]
  - Device leakage [Unknown]
